FAERS Safety Report 5850684-6 (Version None)
Quarter: 2008Q3

REPORT INFORMATION
  Report Type: 
  Country: None (occurrence: None)
  Receive Date: 20080820
  Receipt Date: 20080818
  Transmission Date: 20090109
  Serious: Yes (Death)
  Sender: FDA-Public Use
  Company Number: TH-BRISTOL-MYERS SQUIBB COMPANY-14305197

PATIENT
  Age: 27 Year
  Sex: Female

DRUGS (3)
  1. BLEOMYCIN SULFATE [Suspect]
     Indication: OVARIAN GERM CELL ENDODERMAL SINUS TUMOUR STAGE I
     Dosage: ON DAYS 1, 8 + 15, IN TOTAL 8 CYCLES COMPLETED
     Route: 042
  2. ETOPOSIDE [Suspect]
     Indication: OVARIAN GERM CELL ENDODERMAL SINUS TUMOUR STAGE I
     Dosage: ON DAYS 1-5, 8 CYCLES COMPLETED
     Route: 042
  3. CISPLATIN [Suspect]
     Indication: OVARIAN GERM CELL ENDODERMAL SINUS TUMOUR STAGE I
     Dosage: ON DAYS 1-5, 8 CYCLES COMPLETED
     Route: 042

REACTIONS (1)
  - PULMONARY FIBROSIS [None]
